FAERS Safety Report 5128846-5 (Version None)
Quarter: 2006Q4

REPORT INFORMATION
  Report Type: 
  Country: None (occurrence: None)
  Receive Date: 20061017
  Receipt Date: 20061005
  Transmission Date: 20070319
  Serious: Yes (Hospitalization)
  Sender: FDA-Public Use
  Company Number: JP-JNJFOC-20060603997

PATIENT
  Age: 70 Year
  Sex: Male

DRUGS (2)
  1. ITRIZOLE [Suspect]
     Indication: NAIL TINEA
     Route: 048
  2. LOXONIN [Concomitant]
     Route: 065

REACTIONS (1)
  - MALLORY-WEISS SYNDROME [None]
